FAERS Safety Report 19367966 (Version 1)
Quarter: 2021Q2

REPORT INFORMATION
  Report Type: Spontaneous
  Country: US (occurrence: US)
  Receive Date: 20210602
  Receipt Date: 20210602
  Transmission Date: 20210717
  Serious: No
  Sender: FDA-Public Use
  Company Number: US-ROCHE-2570497

PATIENT
  Age: 55 Year
  Sex: Female

DRUGS (2)
  1. SOLU?MEDROL [Concomitant]
     Active Substance: METHYLPREDNISOLONE SODIUM SUCCINATE
     Indication: PREMEDICATION
  2. OCREVUS [Suspect]
     Active Substance: OCRELIZUMAB
     Indication: RELAPSING MULTIPLE SCLEROSIS
     Dosage: DATE OF MOST RECENT DOSE OF OCRILIZUMAB ADMINISTERED PRIOR TO EVENT: JANUARY 2020
     Route: 065

REACTIONS (1)
  - Insomnia [Unknown]
